FAERS Safety Report 25953016 (Version 1)
Quarter: 2025Q4

REPORT INFORMATION
  Report Type: Spontaneous
  Country: EU (occurrence: EU)
  Receive Date: 20251023
  Receipt Date: 20251023
  Transmission Date: 20260117
  Serious: Yes (Hospitalization, Other)
  Sender: CHEPLAPHARM
  Company Number: None

PATIENT
  Age: 78 Year
  Sex: Male
  Weight: 95 kg

DRUGS (2)
  1. CAPECITABINE [Suspect]
     Active Substance: CAPECITABINE
     Indication: Adenocarcinoma of colon
     Dosage: DAILY DOSE: 2000 MILLIGRAM/M?
     Route: 048
     Dates: start: 202507
  2. OXALIPLATIN [Suspect]
     Active Substance: OXALIPLATIN
     Indication: Adenocarcinoma of colon
     Dosage: 130 MG/M2; SOLUTION FOR DILUTION FOR INFUSION
     Route: 048
     Dates: start: 202507

REACTIONS (8)
  - Gastrointestinal toxicity [Recovering/Resolving]
  - Shock [Unknown]
  - Hypokalaemia [Unknown]
  - Abdominal sepsis [Unknown]
  - Acute kidney injury [Unknown]
  - Multisystem inflammatory syndrome [Unknown]
  - Lymphopenia [Unknown]
  - Gastroenteritis [Unknown]

NARRATIVE: CASE EVENT DATE: 20250901
